FAERS Safety Report 9104528 (Version 4)
Quarter: 2013Q2

REPORT INFORMATION
  Report Type: Report from Study
  Country: US (occurrence: US)
  Receive Date: 20130220
  Receipt Date: 20130419
  Transmission Date: 20140414
  Serious: No
  Sender: FDA-Public Use
  Company Number: US-VERTEX PHARMACEUTICALS INC.-2013-002328

PATIENT
  Age: 48 Year
  Sex: Male
  Weight: 73 kg

DRUGS (4)
  1. VX-950 (TELAPREVIR) [Suspect]
     Indication: HEPATITIS C
     Dosage: 750 MG, TID
     Route: 048
     Dates: start: 20130201, end: 20130402
  2. RIBAVIRIN [Suspect]
     Indication: HEPATITIS C
     Dosage: 600MG IN AM AND 400MG IN PM
     Route: 048
     Dates: start: 20130201, end: 20130402
  3. PEGASYS [Suspect]
     Indication: HEPATITIS C
     Dosage: 180 ?G, WEEKLY
     Route: 058
     Dates: start: 20130201, end: 20130402
  4. CLARITIN                           /00413701/ [Concomitant]

REACTIONS (6)
  - Nasopharyngitis [Recovered/Resolved]
  - Rash generalised [Not Recovered/Not Resolved]
  - Rash papular [Recovered/Resolved]
  - Blister [Recovered/Resolved]
  - Drug ineffective [Not Recovered/Not Resolved]
  - Pruritus [Unknown]
